FAERS Safety Report 12871078 (Version 1)
Quarter: 2016Q4

REPORT INFORMATION
  Report Type: Spontaneous
  Country: BR (occurrence: BR)
  Receive Date: 20161021
  Receipt Date: 20161021
  Transmission Date: 20170207
  Serious: Yes (Hospitalization, Other)
  Sender: FDA-Public Use
  Company Number: BR-JNJFOC-20161017883

PATIENT
  Sex: Female

DRUGS (4)
  1. HYDROCORTISONE. [Concomitant]
     Active Substance: HYDROCORTISONE
     Route: 066
  2. T4 [Concomitant]
     Active Substance: LEVOTHYROXINE
     Route: 065
  3. INVOKANA [Suspect]
     Active Substance: CANAGLIFLOZIN
     Indication: WEIGHT DECREASED
     Route: 065
  4. T3 [Concomitant]
     Active Substance: LIOTHYRONINE SODIUM
     Route: 065

REACTIONS (3)
  - Ketoacidosis [Unknown]
  - Off label use [Unknown]
  - Product use issue [Unknown]
